FAERS Safety Report 6172022-4 (Version None)
Quarter: 2009Q2

REPORT INFORMATION
  Report Type: 
  Country: None (occurrence: None)
  Receive Date: 20090429
  Receipt Date: 20090417
  Transmission Date: 20091009
  Serious: Yes (Hospitalization)
  Sender: FDA-Public Use
  Company Number: TH-PFIZER INC-2009202289

PATIENT

DRUGS (1)
  1. ALPRAZOLAM [Suspect]
     Indication: INSOMNIA
     Route: 048

REACTIONS (5)
  - APHASIA [None]
  - DRUG ADMINISTRATION ERROR [None]
  - FACIAL SPASM [None]
  - HYPERHIDROSIS [None]
  - MUSCLE SPASTICITY [None]
